FAERS Safety Report 5107922-7 (Version None)
Quarter: 2006Q3

REPORT INFORMATION
  Report Type: 
  Country: None (occurrence: None)
  Receive Date: 20060912
  Receipt Date: 20060831
  Transmission Date: 20061208
  Serious: Yes (Hospitalization)
  Sender: FDA-Public Use
  Company Number: 200610598

PATIENT
  Age: 75 Year
  Sex: Male
  Weight: 65 kg

DRUGS (3)
  1. REDIMUNE (IMMUNOGLOBULIN HUMAN NORMAL) (ZLB BEHRING) [Suspect]
     Indication: GUILLAIN-BARRE SYNDROME
     Dosage: 25 G, DAILY; IV
     Route: 042
     Dates: start: 20060830, end: 20060830
  2. REDIMUNE (IMMUNOGLOBULIN HUMAN NORMAL) (ZLB BEHRING) [Suspect]
     Indication: GUILLAIN-BARRE SYNDROME
     Dosage: 24 G QD; IV
     Route: 042
     Dates: start: 20060830, end: 20060830
  3. REDIMUNE (IMMUNOGLOBULIN HUMAN NORMAL) (ZLB BEHRING) [Suspect]
     Indication: GUILLAIN-BARRE SYNDROME
     Dosage: 1 G QD; IV
     Route: 042
     Dates: start: 20060830, end: 20060830

REACTIONS (4)
  - EOSINOPHILIA [None]
  - HYPERTENSION [None]
  - PULMONARY OEDEMA [None]
  - TRANSFUSION REACTION [None]
